FAERS Safety Report 6472927-0 (Version None)
Quarter: 2009Q4

REPORT INFORMATION
  Report Type: 
  Country: None (occurrence: None)
  Receive Date: 20091203
  Receipt Date: 20090813
  Transmission Date: 20100525
  Serious: No
  Sender: FDA-Public Use
  Company Number: US-AMGEN-KDL324786

PATIENT
  Sex: Female
  Weight: 99 kg

DRUGS (6)
  1. ENBREL [Suspect]
     Indication: RHEUMATOID ARTHRITIS
     Route: 058
     Dates: start: 20080227, end: 20090807
  2. METHOTREXATE [Concomitant]
     Route: 048
     Dates: start: 20080204
  3. FOLIC ACID [Concomitant]
     Dates: start: 20080204
  4. CELEBREX [Concomitant]
     Dates: start: 20080204
  5. DARVOCET-N 100 [Concomitant]
     Dates: end: 20081203
  6. SKELAXIN [Concomitant]
     Dates: end: 20080917

REACTIONS (2)
  - INJECTION SITE PAIN [None]
  - SINUSITIS [None]
